FAERS Safety Report 4990784-6 (Version None)
Quarter: 2006Q2

REPORT INFORMATION
  Report Type: 
  Country: None (occurrence: None)
  Receive Date: 20060503
  Receipt Date: 20060420
  Transmission Date: 20061013
  Serious: Yes (Disabling)
  Sender: FDA-Public Use
  Company Number: JP-BOEHRINGER INGELHEIM PHARMACEUTICALS, INC.-2006-BP-04730NB

PATIENT

DRUGS (9)
  1. MICARDIS [Suspect]
     Route: 048
     Dates: start: 20050907
  2. LIPITOR [Concomitant]
     Route: 048
     Dates: start: 20050907
  3. AMARYL [Concomitant]
     Route: 048
     Dates: start: 20050907
  4. NORVASC [Concomitant]
     Route: 048
     Dates: start: 20050907
  5. DORNER [Concomitant]
     Indication: ARTERIOSCLEROSIS OBLITERANS
     Route: 048
     Dates: start: 20050913
  6. PANALDINE [Concomitant]
     Indication: ARTERIOSCLEROSIS OBLITERANS
     Route: 048
     Dates: start: 20050913
  7. PROTECADIN [Concomitant]
     Indication: ARTERIOSCLEROSIS OBLITERANS
     Route: 048
     Dates: start: 20050913
  8. WARFARIN SODIUM [Concomitant]
     Indication: ARTERIOSCLEROSIS OBLITERANS
     Route: 048
     Dates: start: 20051217
  9. ACTOS [Concomitant]
     Route: 048
     Dates: start: 20050907

REACTIONS (1)
  - BLOOD URINE PRESENT [None]
